FAERS Safety Report 4864526-9 (Version None)
Quarter: 2005Q4

REPORT INFORMATION
  Report Type: 
  Country: None (occurrence: None)
  Receive Date: 20051222
  Receipt Date: 20051125
  Transmission Date: 20060501
  Serious: Yes (Other)
  Sender: FDA-Public Use
  Company Number: JP-ROCHE-426239

PATIENT
  Age: 70 Year
  Sex: Female

DRUGS (1)
  1. PANALDINE [Suspect]
     Indication: THROMBOSIS PROPHYLAXIS
     Dosage: OTHER INDICATION: STENT PLACEMENT.
     Route: 048

REACTIONS (2)
  - DIARRHOEA [None]
  - INTERSTITIAL LUNG DISEASE [None]
